FAERS Safety Report 24643098 (Version 3)
Quarter: 2025Q1

REPORT INFORMATION
  Report Type: Spontaneous
  Country: US (occurrence: US)
  Receive Date: 20241120
  Receipt Date: 20250205
  Transmission Date: 20250409
  Serious: No
  Sender: PFIZER
  Company Number: US-PFIZER INC-PV202400079872

PATIENT
  Age: 83 Year
  Sex: Female

DRUGS (6)
  1. TUKYSA [Suspect]
     Active Substance: TUCATINIB
     Indication: Human epidermal growth factor receptor positive
     Dosage: 300 MG TWICE DAILY
  2. TUKYSA [Suspect]
     Active Substance: TUCATINIB
     Dosage: 150 MG, 2X/DAY (1 TABLET TWICE A DAY)
     Route: 048
  3. TUKYSA [Suspect]
     Active Substance: TUCATINIB
     Dosage: 50 MG, 2X/DAY (1 TABLET TWICE A DAY)
  4. TUKYSA [Suspect]
     Active Substance: TUCATINIB
     Dosage: 150MG TAKE 1 TWICE TABLET DAILY
  5. TUKYSA [Suspect]
     Active Substance: TUCATINIB
     Dosage: 150MG 1 TIME A DAY
  6. TUKYSA [Suspect]
     Active Substance: TUCATINIB
     Dosage: 150 MG TAKE 1 TABLET BY MOUTH TWICE DAILY
     Route: 048

REACTIONS (3)
  - Off label use [Unknown]
  - Off label use [Unknown]
  - Anaemia [Unknown]
